FAERS Safety Report 20861502 (Version 1)
Quarter: 2022Q2

REPORT INFORMATION
  Report Type: Report from Study
  Country: CN (occurrence: CN)
  Receive Date: 20220523
  Receipt Date: 20220523
  Transmission Date: 20220721
  Serious: Yes (Death)
  Sender: FDA-Public Use
  Company Number: CN-PFIZER INC-202200716506

PATIENT

DRUGS (1)
  1. CYTARABINE [Suspect]
     Active Substance: CYTARABINE

REACTIONS (5)
  - Electrolyte imbalance [Fatal]
  - Sepsis [Fatal]
  - Pneumonia fungal [Fatal]
  - Hyponatraemia [Unknown]
  - Nausea [Unknown]
